FAERS Safety Report 20005232 (Version 3)
Quarter: 2021Q4

REPORT INFORMATION
  Report Type: Spontaneous
  Country: GB (occurrence: GB)
  Receive Date: 20211028
  Receipt Date: 20211119
  Transmission Date: 20220303
  Serious: Yes (Life-Threatening, Other)
  Sender: FDA-Public Use
  Company Number: GB-MHRA-TPP55062111C7316515YC1634389037177

PATIENT
  Age: 78 Year
  Sex: Male
  Weight: 88 kg

DRUGS (3)
  1. SILDENAFIL [Interacting]
     Active Substance: SILDENAFIL
     Indication: Product used for unknown indication
     Dosage: 50 MILLIGRAM
     Route: 065
     Dates: start: 20210712
  2. TIMOLOL [Interacting]
     Active Substance: TIMOLOL
     Indication: Product used for unknown indication
     Dosage: 0.25 PERCENT
     Route: 050
     Dates: start: 20210713
  3. IOPIDINE [Interacting]
     Active Substance: APRACLONIDINE HYDROCHLORIDE
     Indication: Product used for unknown indication
     Dosage: 5MG/ML
     Route: 050
     Dates: start: 20210713

REACTIONS (2)
  - Cardiac arrest [Unknown]
  - Drug interaction [Recovered/Resolved]

NARRATIVE: CASE EVENT DATE: 20210713
